FAERS Safety Report 8064765-2 (Version None)
Quarter: 2012Q1

REPORT INFORMATION
  Report Type: 
  Country: None (occurrence: None)
  Receive Date: 20120124
  Receipt Date: 20120116
  Transmission Date: 20120608
  Serious: Yes (Death, Hospitalization)
  Sender: FDA-Public Use
  Company Number: JP-BRISTOL-MYERS SQUIBB COMPANY-16231128

PATIENT
  Age: 69 Year
  Sex: Male
  Weight: 50 kg

DRUGS (6)
  1. CARBOPLATIN [Suspect]
     Indication: SMALL CELL LUNG CANCER STAGE UNSPECIFIED
     Dosage: OVER 30 MINUTES ON DAY 1 OF 2NDCYCLE BASED ON A CALCULATED AUC INF
  2. ALLOPURINOL [Concomitant]
     Indication: PREMEDICATION
     Dosage: 7 DAY COURSE: 300MG DAILY
     Route: 048
  3. ONDANSETRON [Concomitant]
     Indication: PREMEDICATION
     Dosage: COMPLETED 3 DAY COURSE:8MG TID
     Route: 042
  4. RANITIDINE [Concomitant]
     Indication: PREMEDICATION
  5. DEXAMETHASONE TAB [Concomitant]
     Indication: PREMEDICATION
  6. DIPHENHYDRAMINE HCL [Concomitant]
     Indication: PREMEDICATION

REACTIONS (2)
  - ATRIAL FLUTTER [None]
  - DEATH [None]
